FAERS Safety Report 24676047 (Version 1)
Quarter: 2024Q4

REPORT INFORMATION
  Report Type: Spontaneous
  Country: CZ (occurrence: CZ)
  Receive Date: 20241128
  Receipt Date: 20241128
  Transmission Date: 20250115
  Serious: Yes (Death, Other)
  Sender: BAUSCH AND LOMB
  Company Number: CZ-Merck Healthcare KGaA-2024060165

PATIENT
  Age: 45 Year
  Sex: Female

DRUGS (14)
  1. DEXAMETHASONE [Interacting]
     Active Substance: DEXAMETHASONE
     Indication: Product used for unknown indication
     Route: 065
  2. CARBAMAZEPINE [Interacting]
     Active Substance: CARBAMAZEPINE
     Indication: Product used for unknown indication
     Dosage: 300 MG TABLETS, TWICE IN MORNING, ONCE AFTERNOON AND TWICE AT NIGHT
     Route: 048
  3. CARBAMAZEPINE [Interacting]
     Active Substance: CARBAMAZEPINE
     Dosage: 300 MG TABLETS, TWICE IN MORNING AND TWICE AT NIGHT
     Route: 048
  4. CLARITHROMYCIN [Interacting]
     Active Substance: CLARITHROMYCIN
     Indication: Product used for unknown indication
     Route: 042
  5. HALOPERIDOL [Suspect]
     Active Substance: HALOPERIDOL
     Indication: Product used for unknown indication
     Dosage: ONE IN THE MORNING AND ONE IN NOON AND 2 IN EVENING
     Route: 048
  6. MELPERONE [Suspect]
     Active Substance: MELPERONE
     Indication: Product used for unknown indication
     Dosage: P. P (AS REPORTED) ONE IN THE MORNING, ONE NOON, 2 EVENING AND 3 AT NIGHT
     Route: 065
  7. CIPROFLOXACIN [Suspect]
     Active Substance: CIPROFLOXACIN
     Indication: Pneumonia
     Route: 065
  8. LEVOMEPROMAZINE [Suspect]
     Active Substance: LEVOMEPROMAZINE
     Indication: Product used for unknown indication
     Dosage: ONCE IN MORNING, EVENING AND NIGHT
     Route: 048
  9. DIAZEPAM [Suspect]
     Active Substance: DIAZEPAM
     Indication: Product used for unknown indication
     Dosage: THREE TIMES A DAY, MORNING, EVENING AND NIGHT
     Route: 048
  10. LEVOTHYROXINE [Concomitant]
     Active Substance: LEVOTHYROXINE
     Indication: Hypothyroidism
     Dosage: ONCE A DAY IN THE MORNING (MON TO FRI)
     Route: 048
  11. LEVOTHYROXINE [Concomitant]
     Active Substance: LEVOTHYROXINE
     Dosage: ONCE A DAY IN THE MORNING (SAT-SUN)
     Route: 048
  12. VALPROATE [Concomitant]
     Active Substance: VALPROIC ACID
     Indication: Product used for unknown indication
     Dosage: ONCE AT MORNING AND NIGHT
     Route: 048
  13. CALCIUM/VITAMIN D [CALCIUM CARBONATE; ERGOCALCIFEROL] [Concomitant]
     Indication: Product used for unknown indication
     Dosage: ONCE IN THE EVENING
  14. LACTULOSE [Concomitant]
     Active Substance: LACTULOSE
     Indication: Constipation
     Dosage: ONE SPOON THREE TIMES A DAY (MORNING, NOON AND EVENING)

REACTIONS (6)
  - Torsade de pointes [Fatal]
  - Lung opacity [Unknown]
  - C-reactive protein increased [Unknown]
  - Procalcitonin increased [Unknown]
  - Drug interaction [Unknown]
  - Drug ineffective [Unknown]
